FAERS Safety Report 18754233 (Version 6)
Quarter: 2021Q1

REPORT INFORMATION
  Report Type: Other
  Country: GB (occurrence: GB)
  Receive Date: 20210119
  Receipt Date: 20210330
  Transmission Date: 20210419
  Serious: Yes (Death, Other)
  Sender: FDA-Public Use
  Company Number: GB-CELLTRION INC.-2018GB023205

PATIENT

DRUGS (79)
  1. TRASTUZUMAB (UNKNOWN) [Suspect]
     Active Substance: TRASTUZUMAB
     Dosage: 300 MG, 3 WEEK
     Route: 042
     Dates: start: 20150629, end: 20150629
  2. CAPECITABINE. [Suspect]
     Active Substance: CAPECITABINE
     Indication: BREAST CANCER METASTATIC
     Dosage: 1500 MILLIGRAM, QD
     Route: 048
     Dates: start: 20170210, end: 20170728
  3. ERIBULIN MESILATE [Suspect]
     Active Substance: ERIBULIN
     Dosage: UNK
     Route: 065
  4. ERIBULIN MESILATE [Suspect]
     Active Substance: ERIBULIN
     Dosage: 1.5 MILLIGRAM, Q3W;
     Route: 042
  5. ERIBULIN MESILATE [Suspect]
     Active Substance: ERIBULIN
     Dosage: 1.5 MILLIGRAM, Q3W
     Route: 042
  6. PERTUZUMAB. [Suspect]
     Active Substance: PERTUZUMAB
     Dosage: 1 DOSAGE FORM, Q3W, UNK, Q3WK, DOSE REDUCED
     Route: 042
  7. TRASTUZUMAB EMTANSINE [Suspect]
     Active Substance: ADO-TRASTUZUMAB EMTANSINE
     Dosage: 172 MG, EVERY 3 WEEKS (FORMULATION: INFUSION, SOLUTION)
     Route: 042
  8. LOPERAMIDE [Concomitant]
     Active Substance: LOPERAMIDE
     Indication: DIARRHOEA
     Dosage: 2 MILLIGRAM, PRN
     Route: 048
     Dates: start: 20170901, end: 20171124
  9. MEROPENEM. [Concomitant]
     Active Substance: MEROPENEM
     Indication: LOWER RESPIRATORY TRACT INFECTION
     Dosage: UNK
     Route: 042
     Dates: start: 20170215, end: 20170221
  10. SANDO K [Concomitant]
     Indication: NUTRITIONAL SUPPLEMENTATION
     Dosage: 2 DF, QD, 2 TABLETS EVERY DAY
     Route: 048
     Dates: start: 20150828, end: 20150830
  11. TAZOCIN [Concomitant]
     Active Substance: PIPERACILLIN SODIUM\TAZOBACTAM SODIUM
     Indication: LOWER RESPIRATORY TRACT INFECTION
     Dosage: UNK
     Route: 042
     Dates: start: 20170213, end: 20170215
  12. TRASTUZUMAB (UNKNOWN) [Suspect]
     Active Substance: TRASTUZUMAB
     Dosage: 140 MILLIGRAM, Q3W
     Route: 042
     Dates: start: 20160215, end: 20160215
  13. TRASTUZUMAB (UNKNOWN) [Suspect]
     Active Substance: TRASTUZUMAB
     Dosage: UNKNOWN, Q3W, DOSE REDUCED
     Route: 042
  14. DOCETAXEL. [Suspect]
     Active Substance: DOCETAXEL
     Indication: BREAST CANCER METASTATIC
     Dosage: 108 MILLIGRAM, Q3W (DOSE MODIFIED)
     Route: 042
  15. NERATINIB [Suspect]
     Active Substance: NERATINIB
     Dosage: 40 UNK
     Route: 048
     Dates: start: 20170901
  16. PERTUZUMAB. [Suspect]
     Active Substance: PERTUZUMAB
     Dosage: 420 MILLIGRAM, Q3W,TARGETED THERAPY
     Route: 042
  17. AMLODIPINE [Concomitant]
     Active Substance: AMLODIPINE BESYLATE
     Indication: PRODUCT USED FOR UNKNOWN INDICATION
     Dosage: 10 MG
     Route: 048
  18. DOMPERIDONE [Concomitant]
     Active Substance: DOMPERIDONE
     Indication: PRODUCT USED FOR UNKNOWN INDICATION
     Dosage: 30 MILLIGRAM, QD
     Route: 048
     Dates: start: 20160406, end: 20160421
  19. DOMPERIDONE [Concomitant]
     Active Substance: DOMPERIDONE
     Dosage: 10 MILLIGRAM (FREQUENCY: 0.33 DAY)
     Route: 048
     Dates: start: 20160406, end: 20160421
  20. MUPIROCIN                          /00753902/ [Concomitant]
     Dosage: 2 %, EVERY 0.3 DAY
     Route: 061
     Dates: start: 20160620, end: 20160624
  21. TRASTUZUMAB (UNKNOWN) [Suspect]
     Active Substance: TRASTUZUMAB
     Dosage: 300 MG, 3 WEEK (DOSE MODIFIED)
     Route: 042
     Dates: start: 20151102, end: 20151102
  22. TRASTUZUMAB (UNKNOWN) [Suspect]
     Active Substance: TRASTUZUMAB
     Dosage: 300 MILLIGRAM, Q3W (DOSE MODIFIED)
     Route: 042
  23. TRASTUZUMAB (UNKNOWN) [Suspect]
     Active Substance: TRASTUZUMAB
     Dosage: 1 DOSAGE FORM, Q3W,DOSE REDUCED
     Route: 042
  24. TRASTUZUMAB (UNKNOWN) [Suspect]
     Active Substance: TRASTUZUMAB
     Dosage: UNK: EVERY 3 WEEK (DOSE REDUCED.)
     Route: 042
  25. CAPECITABINE. [Suspect]
     Active Substance: CAPECITABINE
     Indication: HER2 POSITIVE BREAST CANCER
     Dosage: 3000 MILLIGRAM, QD
     Route: 048
     Dates: start: 20170210, end: 20170728
  26. CAPECITABINE. [Suspect]
     Active Substance: CAPECITABINE
     Dosage: 3000 MG, BID
     Route: 048
     Dates: start: 20170210, end: 20170728
  27. DOCETAXEL. [Suspect]
     Active Substance: DOCETAXEL
     Indication: HER2 POSITIVE BREAST CANCER
     Dosage: 108 MILLIGRAM, Q3W,DOSE MODIFIED
     Route: 042
     Dates: start: 20150602, end: 20150602
  28. ERIBULIN MESYLATE [Suspect]
     Active Substance: ERIBULIN MESYLATE
     Indication: BREAST CANCER METASTATIC
     Dosage: 1.5 MG, EVERY 3 WEEKS
     Route: 042
  29. CIPROFLOXACIN. [Concomitant]
     Active Substance: CIPROFLOXACIN
     Indication: PRODUCT USED FOR UNKNOWN INDICATION
     Dosage: 1000 MILLIGRAM, QD
     Route: 048
     Dates: start: 20151218, end: 20151225
  30. CO?AMOXICLAV                       /00756801/ [Concomitant]
     Active Substance: AMOXICILLIN\CLAVULANIC ACID
     Indication: LOWER RESPIRATORY TRACT INFECTION
     Dosage: 1875 MILLIGRAM, QD
     Route: 048
     Dates: start: 20170222, end: 20170228
  31. FILGRASTIM [Concomitant]
     Active Substance: FILGRASTIM
     Dosage: 300 MICROGRAM, EVERY DAY FOR 3 DAYS STARTING ON DAYS 3;
     Route: 058
     Dates: start: 20160421, end: 20160712
  32. LOPERAMIDE [Concomitant]
     Active Substance: LOPERAMIDE
     Dosage: UNKNOWN
     Route: 048
     Dates: start: 20170901, end: 20171124
  33. MUPIROCIN                          /00753902/ [Concomitant]
     Dosage: UNK, EVERY 0.33 DAY
     Route: 061
     Dates: start: 20160620, end: 20160624
  34. CAPECITABINE. [Suspect]
     Active Substance: CAPECITABINE
     Dosage: 3000 MG, QD
     Route: 048
  35. TRASTUZUMAB EMTANSINE [Suspect]
     Active Substance: ADO-TRASTUZUMAB EMTANSINE
     Dosage: 172 MILLIGRAM, Q3W
     Route: 042
     Dates: start: 20151201
  36. FILGRASTIM [Concomitant]
     Active Substance: FILGRASTIM
     Indication: PRODUCT USED FOR UNKNOWN INDICATION
     Dosage: 300 UG, QD
     Route: 058
     Dates: start: 20150725, end: 20150730
  37. FILGRASTIM [Concomitant]
     Active Substance: FILGRASTIM
     Dosage: 300 MICROGRAM, EVERY DAY FOR THREE DAYS STARTING ON DAYS THREE AND 11
     Route: 058
     Dates: start: 20160421, end: 20160712
  38. IRRADIATED RED BLOOD CELLS?LEUKOCYTES REDUCED [Concomitant]
     Active Substance: HUMAN RED BLOOD CELL
     Indication: PRODUCT USED FOR UNKNOWN INDICATION
     Dosage: 2 U, QD
     Route: 042
     Dates: start: 20180526, end: 20180526
  39. MUPIROCIN                          /00753902/ [Concomitant]
     Dosage: 2 PERCENT, QD
     Route: 061
     Dates: start: 20160620, end: 20160624
  40. ERIBULIN MESILATE [Suspect]
     Active Substance: ERIBULIN
     Indication: HER2 POSITIVE BREAST CANCER
     Dosage: 1.5 MILLIGRAM, Q3W
     Route: 042
     Dates: start: 20160411
  41. ERIBULIN MESILATE [Suspect]
     Active Substance: ERIBULIN
     Indication: BREAST CANCER METASTATIC
     Dosage: 1.5 MILLIGRAM, Q3WK
     Route: 042
     Dates: start: 20160411, end: 20160411
  42. PERTUZUMAB. [Suspect]
     Active Substance: PERTUZUMAB
     Indication: HER2 POSITIVE BREAST CANCER
     Dosage: 840 MILLIGRAM,LOADING CASE
     Route: 042
  43. PERTUZUMAB. [Suspect]
     Active Substance: PERTUZUMAB
     Dosage: 420 MG, 3 WEEK, TARGETED THERAPY
     Route: 042
     Dates: start: 20151102, end: 20151102
  44. PERTUZUMAB. [Suspect]
     Active Substance: PERTUZUMAB
     Dosage: 420 MG, Q3W
     Route: 042
  45. TRASTUZUMAB EMTANSINE [Suspect]
     Active Substance: ADO-TRASTUZUMAB EMTANSINE
     Indication: BREAST CANCER METASTATIC
     Dosage: 140 MILLIGRAM, Q3W
     Route: 042
     Dates: start: 20160215, end: 20160215
  46. VINORELBINE [Suspect]
     Active Substance: VINORELBINE TARTRATE
     Indication: HER2 POSITIVE BREAST CANCER
     Dosage: 60 MILLIGRAM
     Route: 048
     Dates: start: 20180608, end: 20180810
  47. VINORELBINE [Suspect]
     Active Substance: VINORELBINE TARTRATE
     Indication: BREAST CANCER METASTATIC
     Dosage: 60 MILLIGRAM
     Route: 048
     Dates: start: 20180503, end: 20180608
  48. VINORELBINE TARTRATE. [Suspect]
     Active Substance: VINORELBINE TARTRATE
     Indication: HER2 POSITIVE BREAST CANCER
     Dosage: 60 MG / 60 UNK;
     Route: 048
  49. GENTAMICIN. [Concomitant]
     Active Substance: GENTAMICIN
     Indication: LOWER RESPIRATORY TRACT INFECTION
     Dosage: UNK
     Route: 042
     Dates: start: 20170213, end: 201702
  50. MUPIROCIN                          /00753902/ [Concomitant]
     Indication: PROPHYLAXIS
     Dosage: 6 PERCENT, QD
     Route: 061
     Dates: start: 20160620, end: 20160624
  51. TRASTUZUMAB (UNKNOWN) [Suspect]
     Active Substance: TRASTUZUMAB
     Indication: HER2 POSITIVE BREAST CANCER
     Dosage: 350 MG, LOADING DOSE
     Route: 042
     Dates: start: 20150601, end: 20150601
  52. TRASTUZUMAB (UNKNOWN) [Suspect]
     Active Substance: TRASTUZUMAB
     Dosage: 172 MILLIGRAM, Q3W
     Route: 042
     Dates: start: 20151201, end: 20151221
  53. DOCETAXEL. [Suspect]
     Active Substance: DOCETAXEL
     Dosage: 86 MILLIGRAM, Q3W, DOSE DISCONTINUED, THREE WEEK
     Route: 042
     Dates: start: 20150629, end: 20150720
  54. ERIBULIN MESILATE [Suspect]
     Active Substance: ERIBULIN
     Dosage: 1.5 MG, EVERY 3 WEEKS
     Route: 042
  55. TRASTUZUMAB EMTANSINE [Suspect]
     Active Substance: ADO-TRASTUZUMAB EMTANSINE
     Dosage: 140 MILLIGRAM, Q3W
     Route: 042
     Dates: start: 20151201, end: 20160215
  56. VINORELBINE TARTRATE. [Suspect]
     Active Substance: VINORELBINE TARTRATE
     Dosage: 60 MG
     Route: 048
     Dates: start: 20180503, end: 20180608
  57. CIPROFLOXACIN. [Concomitant]
     Active Substance: CIPROFLOXACIN
     Dosage: 500 MILLIGRAM, QD
     Route: 048
     Dates: start: 20151218, end: 20151225
  58. CO?AMOXICLAV                       /00756801/ [Concomitant]
     Active Substance: AMOXICILLIN\CLAVULANIC ACID
     Dosage: 625 MILLIGRAM, QD
     Route: 048
     Dates: start: 20170222, end: 20170228
  59. CO?AMOXICLAV                       /00756801/ [Concomitant]
     Active Substance: AMOXICILLIN\CLAVULANIC ACID
     Dosage: 625 MILLIGRAM (FREQUENCY: 0.33 DAY)
     Route: 048
     Dates: start: 20170222, end: 20170228
  60. DOMPERIDONE [Concomitant]
     Active Substance: DOMPERIDONE
     Dosage: 10 MG, EVERY 0.3 DAY
     Route: 048
     Dates: start: 20160406, end: 20160421
  61. FOLIC ACID. [Concomitant]
     Active Substance: FOLIC ACID
     Indication: BLOOD FOLATE DECREASED
     Dosage: 5 MG, QD
     Route: 048
     Dates: start: 20150828, end: 201708
  62. ERIBULIN MESILATE [Suspect]
     Active Substance: ERIBULIN
     Dosage: 1.5 MG, 3 WEEK
     Route: 042
     Dates: start: 20160624, end: 20160624
  63. NERATINIB [Suspect]
     Active Substance: NERATINIB
     Indication: HER2 POSITIVE BREAST CANCER
     Dosage: 40 MILLIGRAM, QD
     Route: 048
     Dates: start: 20170901, end: 20180314
  64. NERATINIB [Suspect]
     Active Substance: NERATINIB
     Indication: BREAST CANCER METASTATIC
     Dosage: UNK
     Route: 065
  65. PERTUZUMAB. [Suspect]
     Active Substance: PERTUZUMAB
     Indication: BREAST CANCER METASTATIC
     Dosage: 420 MILLIGRAM, Q3W,TARGETED THERAPY
     Route: 042
     Dates: start: 20150622, end: 20150622
  66. PERTUZUMAB. [Suspect]
     Active Substance: PERTUZUMAB
     Dosage: 420 MILLIGRAM, Q3WK, TARGETED THERAPY
     Route: 042
     Dates: start: 20150622, end: 20151102
  67. PERTUZUMAB. [Suspect]
     Active Substance: PERTUZUMAB
     Dosage: 1 DF, EVERY 3 WEEK
     Route: 042
  68. TRASTUZUMAB EMTANSINE [Suspect]
     Active Substance: ADO-TRASTUZUMAB EMTANSINE
     Indication: HER2 POSITIVE BREAST CANCER
     Dosage: 172 MILLIGRAM, Q3W
     Route: 042
     Dates: start: 20151201, end: 20151221
  69. VINORELBINE TARTRATE. [Suspect]
     Active Substance: VINORELBINE TARTRATE
     Dosage: 60 MG;
     Route: 048
     Dates: start: 20180608, end: 20180810
  70. TRASTUZUMAB (UNKNOWN) [Suspect]
     Active Substance: TRASTUZUMAB
     Indication: BREAST CANCER METASTATIC
     Dosage: 350 MILLIGRAM, LOADING DOSE
     Route: 042
     Dates: start: 20150601, end: 20150601
  71. TRASTUZUMAB (UNKNOWN) [Suspect]
     Active Substance: TRASTUZUMAB
     Dosage: 300 MILLIGRAM, Q3W (DOSE MODIFIED)
     Route: 042
     Dates: start: 20150629, end: 20151102
  72. CAPECITABINE. [Suspect]
     Active Substance: CAPECITABINE
     Dosage: 1500 MILLIGRAM, BID
     Route: 048
  73. NERATINIB [Suspect]
     Active Substance: NERATINIB
     Dosage: 40 MILLIGRAM, QD
     Route: 048
  74. TRASTUZUMAB EMTANSINE [Suspect]
     Active Substance: ADO-TRASTUZUMAB EMTANSINE
     Dosage: 140 MG, Q3W
     Route: 042
  75. TRASTUZUMAB EMTANSINE [Suspect]
     Active Substance: ADO-TRASTUZUMAB EMTANSINE
     Dosage: 140 MILLIGRAM, Q3W (FORMULATION: INFUSION, SOLUTION)
     Route: 042
  76. VINORELBINE [Suspect]
     Active Substance: VINORELBINE TARTRATE
     Dosage: 60 MILLIGRAM
     Route: 048
     Dates: start: 20180530, end: 20180608
  77. VINORELBINE [Suspect]
     Active Substance: VINORELBINE TARTRATE
     Dosage: 60 MILLIGRAM
     Route: 048
  78. DOMPERIDONE [Concomitant]
     Active Substance: DOMPERIDONE
     Dosage: 10 MILLIGRAM, QD
     Route: 048
     Dates: start: 20160406, end: 20160421
  79. IRRADIATED RED BLOOD CELLS?LEUKOCYTES REDUCED [Concomitant]
     Active Substance: HUMAN RED BLOOD CELL
     Dosage: 2 U, QD
     Route: 042
     Dates: start: 20160702, end: 20160702

REACTIONS (31)
  - Disease progression [Fatal]
  - Thrombocytopenia [Fatal]
  - Hyperchlorhydria [Fatal]
  - Nausea [Fatal]
  - Diarrhoea [Fatal]
  - Fatigue [Fatal]
  - Neuropathy peripheral [Fatal]
  - Weight decreased [Fatal]
  - Folate deficiency [Fatal]
  - Hypoaesthesia [Fatal]
  - Cough [Fatal]
  - Product use issue [Fatal]
  - Alopecia [Not Recovered/Not Resolved]
  - Throat irritation [Fatal]
  - Colitis [Fatal]
  - Dysphonia [Fatal]
  - Tremor [Fatal]
  - Alopecia [Not Recovered/Not Resolved]
  - Fatigue [Fatal]
  - Dyspepsia [Fatal]
  - Lethargy [Fatal]
  - Diarrhoea [Fatal]
  - Mucosal inflammation [Fatal]
  - Pancytopenia [Fatal]
  - Rash pruritic [Fatal]
  - Palpitations [Fatal]
  - Decreased appetite [Fatal]
  - Odynophagia [Fatal]
  - Pyrexia [Fatal]
  - Off label use [Fatal]
  - Neutropenia [Fatal]

NARRATIVE: CASE EVENT DATE: 2015
